FAERS Safety Report 9624764 (Version 1)
Quarter: 2013Q4

REPORT INFORMATION
  Report Type: Spontaneous
  Country: US (occurrence: US)
  Receive Date: 20131015
  Receipt Date: 20131015
  Transmission Date: 20140711
  Serious: Yes (Hospitalization)
  Sender: FDA-Public Use
  Company Number: US-MYLANLABS-2013S1022258

PATIENT
  Age: 39 Year
  Sex: Male

DRUGS (9)
  1. KETOROLAC [Suspect]
     Dosage: 30MG DURING SURGERY; 30MG POSTOPERATIVELY
  2. PROPOFOL [Concomitant]
     Indication: INDUCTION OF ANAESTHESIA
     Route: 065
  3. SEVOFLURANE [Concomitant]
     Indication: APPENDICECTOMY
     Route: 065
  4. MIDAZOLAM [Concomitant]
     Indication: APPENDICECTOMY
     Route: 065
  5. FENTANYL [Concomitant]
     Indication: APPENDICECTOMY
     Route: 065
  6. ROCURONIUM BROMIDE [Concomitant]
     Indication: APPENDICECTOMY
     Route: 065
  7. NEOSTIGMINE [Concomitant]
     Indication: ANAESTHESIA REVERSAL
     Route: 065
  8. GLYCOPYRROLATE [Concomitant]
     Indication: ANAESTHESIA REVERSAL
     Route: 065
  9. MORPHINE [Concomitant]
     Dosage: 12MG POSTOPERATIVELY
     Route: 042

REACTIONS (1)
  - Pulmonary alveolar haemorrhage [Recovered/Resolved]
